FAERS Safety Report 8919229 (Version 1)
Quarter: 2012Q4

REPORT INFORMATION
  Report Type: 
  Country: US (occurrence: US)
  Receive Date: 20121121
  Receipt Date: 20121121
  Transmission Date: 20130627
  Serious: Yes (Other)
  Sender: FDA-Public Use
  Company Number: US-US-EMD SERONO, INC.-7141268

PATIENT
  Sex: Female

DRUGS (2)
  1. REBIF [Suspect]
     Indication: MULTIPLE SCLEROSIS
     Route: 058
     Dates: start: 20031103
  2. LYRICA [Concomitant]
     Indication: PAIN IN EXTREMITY

REACTIONS (4)
  - Uterine leiomyoma [Unknown]
  - Hot flush [Unknown]
  - Multiple sclerosis relapse [Unknown]
  - Fatigue [Unknown]
